FAERS Safety Report 23544511 (Version 1)
Quarter: 2024Q1

REPORT INFORMATION
  Report Type: Spontaneous
  Country: US (occurrence: US)
  Receive Date: 20240220
  Receipt Date: 20240220
  Transmission Date: 20240410
  Serious: No
  Sender: FDA-Public Use
  Company Number: US-Calliditas-2024CAL00212

PATIENT
  Age: 39 Year
  Sex: Female

DRUGS (1)
  1. TARPEYO [Suspect]
     Active Substance: BUDESONIDE
     Indication: IgA nephropathy
     Dosage: 16 MG (4 MG CAPSULES) ONCE DAILY
     Route: 048
     Dates: start: 20240104

REACTIONS (6)
  - Polymenorrhoea [Unknown]
  - Swelling face [Unknown]
  - Peripheral swelling [Unknown]
  - Agitation [Unknown]
  - Weight increased [Unknown]
  - Increased tendency to bruise [Unknown]
